FAERS Safety Report 4843953-X (Version None)
Quarter: 2005Q4

REPORT INFORMATION
  Report Type: 
  Country: None (occurrence: None)
  Receive Date: 20051202
  Receipt Date: 20050929
  Transmission Date: 20060501
  Serious: Yes (Hospitalization, Disabling, Other)
  Sender: FDA-Public Use
  Company Number: US-MERCK-0510USA00573

PATIENT
  Age: 47 Year
  Sex: Male
  Weight: 103 kg

DRUGS (2)
  1. VIOXX [Suspect]
     Indication: SWELLING
     Route: 048
     Dates: start: 19990812
  2. VIOXX [Suspect]
     Route: 048
     Dates: start: 19990812

REACTIONS (7)
  - BACK DISORDER [None]
  - CARDIAC DISORDER [None]
  - CEREBROVASCULAR DISORDER [None]
  - CHRONIC OBSTRUCTIVE PULMONARY DISEASE [None]
  - ISCHAEMIC STROKE [None]
  - MYOCARDIAL INFARCTION [None]
  - PARALYSIS [None]
